FAERS Safety Report 5446432-4 (Version None)
Quarter: 2007Q3

REPORT INFORMATION
  Report Type: 
  Country: None (occurrence: None)
  Receive Date: 20070907
  Receipt Date: 20070426
  Transmission Date: 20080115
  Serious: Yes (Other)
  Sender: FDA-Public Use
  Company Number: US-ROCHE-515098

PATIENT
  Sex: Female

DRUGS (1)
  1. ACCUTANE [Suspect]
     Indication: DRUG USE FOR UNKNOWN INDICATION
     Dosage: PATIENT CONSUMED THREE 20-MG ACCUTANE CAPSULES.
     Route: 048
     Dates: start: 20061108

REACTIONS (2)
  - ABORTION [None]
  - NO ADVERSE REACTION [None]
